FAERS Safety Report 6245333-1 (Version None)
Quarter: 2009Q2

REPORT INFORMATION
  Report Type: 
  Country: None (occurrence: None)
  Receive Date: 20090623
  Receipt Date: 20090623
  Transmission Date: 20091009
  Serious: Yes (Other)
  Sender: FDA-Public Use
  Company Number: None

PATIENT
  Age: 65 Year
  Sex: Female
  Weight: 74.8435 kg

DRUGS (3)
  1. ZICAM GEL SWABS ZINCUM GLUCONICUM 2X MATRIXX INITIATIES, INC. [Suspect]
     Indication: NASOPHARYNGITIS
     Dosage: 1 GEL SWAB DOSE NOT STATED Q.I.D. NASAL; NASAL GEL B.I.D. NASAL
     Route: 045
     Dates: start: 20090301, end: 20090301
  2. ZICAM GEL SWABS ZINCUM GLUCONICUM 2X MATRIXX INITIATIES, INC. [Suspect]
     Indication: NASOPHARYNGITIS
     Dosage: 1 GEL SWAB DOSE NOT STATED Q.I.D. NASAL; NASAL GEL B.I.D. NASAL
     Route: 045
     Dates: start: 20090412, end: 20090414
  3. ZICAM GEL SWABS ZINCUM GLUCONICUM 2X MATRIXX INITIATIES, INC. [Suspect]

REACTIONS (1)
  - NASAL DISCOMFORT [None]
